FAERS Safety Report 5948770-5 (Version None)
Quarter: 2008Q4

REPORT INFORMATION
  Report Type: 
  Country: None (occurrence: None)
  Receive Date: 20081107
  Receipt Date: 20081029
  Transmission Date: 20090506
  Serious: Yes (Hospitalization, Disabling)
  Sender: FDA-Public Use
  Company Number: PIR# 0810043

PATIENT
  Age: 63 Year
  Sex: Male
  Weight: 74 kg

DRUGS (1)
  1. DEXTROSE 5%, SODIUM CHLORIDE 0.45% AND POTASSIUM CHLORIDE 5MEQ [Suspect]

REACTIONS (4)
  - ACCIDENTAL EXPOSURE [None]
  - INCORRECT ROUTE OF DRUG ADMINISTRATION [None]
  - MUSCLE DISORDER [None]
  - PARAPLEGIA [None]
